FAERS Safety Report 5846206-6 (Version None)
Quarter: 2008Q3

REPORT INFORMATION
  Report Type: 
  Country: None (occurrence: None)
  Receive Date: 20080813
  Receipt Date: 20080730
  Transmission Date: 20090109
  Serious: No
  Sender: FDA-Public Use
  Company Number: US024237

PATIENT
  Sex: Female

DRUGS (5)
  1. FENTORA [Suspect]
     Indication: BACK PAIN
     Dosage: 400 UG  BUCCAL
     Route: 002
     Dates: start: 20080401
  2. FENTORA [Suspect]
     Indication: CANCER PAIN
     Dosage: 400 UG  BUCCAL
     Route: 002
     Dates: start: 20080401
  3. FENTORA [Suspect]
     Indication: BACK PAIN
     Dosage: TITRATED FROM 400 UG UP TO 800 UG BUCCAL
     Route: 002
  4. FENTORA [Suspect]
     Indication: CANCER PAIN
     Dosage: TITRATED FROM 400 UG UP TO 800 UG BUCCAL
     Route: 002
  5. DURAGESIC-100 [Concomitant]

REACTIONS (2)
  - DRUG PRESCRIBING ERROR [None]
  - MEDICATION ERROR [None]
